FAERS Safety Report 9660409 (Version 3)
Quarter: 2014Q4

REPORT INFORMATION
  Report Type: Spontaneous
  Country: US (occurrence: US)
  Receive Date: 20131031
  Receipt Date: 20141030
  Transmission Date: 20150529
  Serious: Yes (Hospitalization, Other)
  Sender: FDA-Public Use
  Company Number: US-BAYER-2013-131986

PATIENT
  Age: 29 Year
  Sex: Female
  Weight: 56.69 kg

DRUGS (15)
  1. CEFOXITIN [Concomitant]
     Active Substance: CEFOXITIN\CEFOXITIN SODIUM
  2. ABILIFY [Concomitant]
     Active Substance: ARIPIPRAZOLE
     Dosage: 125 MG, DAILY
     Route: 048
  3. TOPAMAX [Concomitant]
     Active Substance: TOPIRAMATE
     Dosage: 100 MG, UNK
     Route: 048
  4. VITAMIN D [Concomitant]
     Active Substance: CHOLECALCIFEROL
     Dosage: 50,000 UNITS [EVERY] WEEK
  5. DOXYCYCLINE. [Concomitant]
     Active Substance: DOXYCYCLINE
  6. DILAUDID [Concomitant]
     Active Substance: HYDROMORPHONE HYDROCHLORIDE
     Indication: PAIN
  7. LACOSAMIDE [Concomitant]
     Active Substance: LACOSAMIDE
     Dosage: 100 MG, UNK
     Route: 048
  8. FLAGYL [Concomitant]
     Active Substance: METRONIDAZOLE\METRONIDAZOLE HYDROCHLORIDE
     Indication: PAIN
  9. IBUPROFEN. [Concomitant]
     Active Substance: IBUPROFEN
     Dosage: 800 MG, UNK
  10. NORCO [Concomitant]
     Active Substance: ACETAMINOPHEN\HYDROCODONE BITARTRATE
     Indication: PAIN
  11. LAMICTAL [Concomitant]
     Active Substance: LAMOTRIGINE
     Dosage: 40 MG, UNK
     Route: 048
  12. ADVIL [Concomitant]
     Active Substance: IBUPROFEN
  13. LEVOFLOXACIN. [Concomitant]
     Active Substance: LEVOFLOXACIN
     Indication: PAIN
  14. MIRENA [Suspect]
     Active Substance: LEVONORGESTREL
     Indication: CONTRACEPTION
     Dosage: 20 MCG/24HR, CONT
     Route: 015
     Dates: start: 20081016, end: 20101020
  15. LEXAPRO [Concomitant]
     Active Substance: ESCITALOPRAM OXALATE
     Dosage: 15 MG, EVERY NIGHT
     Route: 048

REACTIONS (14)
  - Depressed mood [None]
  - Genital haemorrhage [None]
  - Tubo-ovarian abscess [None]
  - Abdominal pain [None]
  - Emotional distress [None]
  - Internal injury [None]
  - Medical device discomfort [None]
  - Anxiety [None]
  - Pelvic pain [None]
  - Fear [None]
  - Uterine perforation [None]
  - Salpingitis [None]
  - Injury [None]
  - Depression [None]

NARRATIVE: CASE EVENT DATE: 201010
